FAERS Safety Report 12635873 (Version 7)
Quarter: 2017Q2

REPORT INFORMATION
  Report Type: Spontaneous
  Country: US (occurrence: US)
  Receive Date: 20160809
  Receipt Date: 20170523
  Transmission Date: 20170830
  Serious: No
  Sender: FDA-Public Use
  Company Number: US-ACTELION-A-US2016-140321

PATIENT
  Age: 69 Year
  Sex: Female
  Weight: 97.52 kg

DRUGS (4)
  1. OPSUMIT [Suspect]
     Active Substance: MACITENTAN
     Indication: PULMONARY ARTERIAL HYPERTENSION
     Dosage: 10 MG, QD
     Route: 048
     Dates: start: 20150626
  2. UPTRAVI [Suspect]
     Active Substance: SELEXIPAG
     Dosage: 800 MCG, BID
     Route: 048
  3. UPTRAVI [Suspect]
     Active Substance: SELEXIPAG
     Dosage: 1000 MCG, BID
     Route: 048
  4. UPTRAVI [Suspect]
     Active Substance: SELEXIPAG
     Indication: PULMONARY ARTERIAL HYPERTENSION
     Dosage: 200 MCG, BID
     Route: 048
     Dates: start: 20160310

REACTIONS (18)
  - Pain in jaw [Unknown]
  - Sleep disorder [Unknown]
  - Pain [Unknown]
  - Nausea [Unknown]
  - Syncope [Unknown]
  - Feeling hot [Unknown]
  - Abdominal discomfort [Unknown]
  - Headache [Unknown]
  - Tooth disorder [Unknown]
  - Dyspnoea paroxysmal nocturnal [Unknown]
  - Chest pain [Unknown]
  - Cough [Unknown]
  - Arthralgia [Unknown]
  - Pain in extremity [Unknown]
  - Fatigue [Unknown]
  - Exercise tolerance decreased [Unknown]
  - Viral upper respiratory tract infection [Unknown]
  - Dyspnoea exertional [Unknown]
